FAERS Safety Report 9185699 (Version 1)
Quarter: 2013Q1

REPORT INFORMATION
  Report Type: Spontaneous
  Country: IT (occurrence: IT)
  Receive Date: 20130325
  Receipt Date: 20130325
  Transmission Date: 20140127
  Serious: Yes (Hospitalization)
  Sender: FDA-Public Use
  Company Number: IT-TEVA-392198ISR

PATIENT
  Age: 64 Year
  Sex: Male

DRUGS (5)
  1. CLARITHROMYCIN [Suspect]
     Indication: BRONCHITIS
     Dosage: 1000 MILLIGRAM DAILY;
     Route: 048
     Dates: start: 20130308, end: 20130310
  2. FOSAVANCE [Concomitant]
  3. COTAREG [Concomitant]
  4. AGGRENOX [Concomitant]
  5. RANITIDINA [Concomitant]

REACTIONS (1)
  - Tongue oedema [Recovering/Resolving]
